FAERS Safety Report 13496686 (Version 1)
Quarter: 2017Q2

REPORT INFORMATION
  Report Type: Spontaneous
  Country: GB (occurrence: GB)
  Receive Date: 20170428
  Receipt Date: 20170428
  Transmission Date: 20170830
  Serious: Yes (Death)
  Sender: FDA-Public Use
  Company Number: GB-MYLANLABS-2017M1025250

PATIENT

DRUGS (5)
  1. PARACETAMOL [Suspect]
     Active Substance: ACETAMINOPHEN
     Dosage: UNK
  2. CODEINE [Suspect]
     Active Substance: CODEINE
     Dosage: UNK
  3. CYTOTEC [Suspect]
     Active Substance: MISOPROSTOL
     Dosage: UNK
     Route: 067
  4. AZITHROMYCIN ANHYDROUS. [Suspect]
     Active Substance: AZITHROMYCIN ANHYDROUS
     Dosage: UNK
  5. MIFEGYNE [Suspect]
     Active Substance: MIFEPRISTONE
     Dosage: UNK

REACTIONS (2)
  - Circulatory collapse [Fatal]
  - Product use in unapproved indication [Fatal]
